FAERS Safety Report 8048447-9 (Version None)
Quarter: 2012Q1

REPORT INFORMATION
  Report Type: 
  Country: None (occurrence: None)
  Receive Date: 20120110
  Receipt Date: 20111229
  Transmission Date: 20120608
  Serious: Yes (Other)
  Sender: FDA-Public Use
  Company Number: 2012030694

PATIENT
  Age: 25 Year
  Sex: Female

DRUGS (2)
  1. CINRYZE (COMPLEMENT C1 ESTERASE INHIBITOR) [Suspect]
     Indication: HEREDITARY ANGIOEDEMA
  2. BERINERT (C1 ESTERASE INHIBITOR, HUMAN) [Suspect]
     Indication: HEREDITARY ANGIOEDEMA
     Dosage: (INTRAVENOUS (NOT OTHERWISE SPECIFIED)
     Route: 042
     Dates: start: 20111201

REACTIONS (3)
  - CONDITION AGGRAVATED [None]
  - INFUSION SITE HAEMORRHAGE [None]
  - HEREDITARY ANGIOEDEMA [None]
